FAERS Safety Report 9327279 (Version 1)
Quarter: 2013Q2

REPORT INFORMATION
  Report Type: Spontaneous
  Country: US (occurrence: US)
  Receive Date: 20130604
  Receipt Date: 20130604
  Transmission Date: 20140414
  Serious: Yes (Hospitalization)
  Sender: FDA-Public Use
  Company Number: US-AMGEN-USASP2013032895

PATIENT
  Age: 61 Year
  Sex: Female

DRUGS (1)
  1. ENBREL [Suspect]
     Indication: PSORIATIC ARTHROPATHY
     Dosage: 50 MG, TWICE A WEEK
     Dates: start: 20030401, end: 201304

REACTIONS (4)
  - Chest pain [Recovered/Resolved]
  - Renal disorder [Not Recovered/Not Resolved]
  - Stent placement [Recovered/Resolved]
  - Herpes zoster [Recovered/Resolved]
